FAERS Safety Report 8453833-9 (Version None)
Quarter: 2012Q2

REPORT INFORMATION
  Report Type: 
  Country: None (occurrence: None)
  Receive Date: 20120323
  Receipt Date: 20111101
  Transmission Date: 20120825
  Serious: Yes (Other)
  Sender: FDA-Public Use
  Company Number: 163-21880-11110440

PATIENT
  Age: 56 Year
  Sex: Female
  Weight: 107.5025 kg

DRUGS (9)
  1. KLOR-CON [Concomitant]
  2. FERROUS S04 (FERROUS SULFATE) [Concomitant]
  3. CHEMO (ANTINEOPLASTIC AGENTS) [Concomitant]
  4. PROMETHAZINE [Concomitant]
  5. REVLIMID [Suspect]
     Indication: MULTIPLE MYELOMA
     Dosage: 10 MG, QD X 21 BI-WEEKLY 3 OUT OF 4 WEEKS, PO
     Route: 048
     Dates: start: 20110910
  6. MAGNESIUM (MAGNESIUM) [Concomitant]
  7. OXYCONTIN [Concomitant]
  8. CELEXA [Concomitant]
  9. PERCOCET [Concomitant]

REACTIONS (2)
  - RECTAL HAEMORRHAGE [None]
  - STOMATITIS [None]
